FAERS Safety Report 25887559 (Version 1)
Quarter: 2025Q4

REPORT INFORMATION
  Report Type: Report from Study
  Country: US (occurrence: US)
  Receive Date: 20251007
  Receipt Date: 20251007
  Transmission Date: 20260119
  Serious: Yes (Other)
  Sender: ABBVIE
  Company Number: US-ABBVIE-6452475

PATIENT
  Sex: Male
  Weight: 71.667 kg

DRUGS (10)
  1. CREON [Suspect]
     Active Substance: PANCRELIPASE AMYLASE\PANCRELIPASE LIPASE\PANCRELIPASE PROTEASE
     Indication: Pancreatic enzyme replacement therapy
     Dosage: FORM STRENGTH: 24000 UNIT?FREQUENCY TEXT: 2 CAPS
     Route: 048
     Dates: start: 2023, end: 202501
  2. CREON [Suspect]
     Active Substance: PANCRELIPASE AMYLASE\PANCRELIPASE LIPASE\PANCRELIPASE PROTEASE
     Indication: Pancreatic enzyme replacement therapy
     Dosage: FORM STRENGTH: 36000 UNIT?FREQUENCY TEXT: 2 CAPS
     Route: 048
     Dates: start: 202501
  3. FOLIC ACID [Concomitant]
     Active Substance: FOLIC ACID
     Indication: Vitamin supplementation
  4. PROSCAR [Concomitant]
     Active Substance: FINASTERIDE
     Indication: Prostatomegaly
  5. VITAMIN D3 [Concomitant]
     Active Substance: CHOLECALCIFEROL
     Indication: Vitamin supplementation
  6. ZARONTIN [Concomitant]
     Active Substance: ETHOSUXIMIDE
     Indication: Epilepsy
  7. KLONOPIN [Concomitant]
     Active Substance: CLONAZEPAM
     Indication: Epilepsy
  8. DILANTIN [Concomitant]
     Active Substance: PHENYTOIN
     Indication: Epilepsy
  9. IRON [Concomitant]
     Active Substance: IRON
     Indication: Mineral supplementation
  10. PHENOBARBITAL [Concomitant]
     Active Substance: PHENOBARBITAL
     Indication: Epilepsy

REACTIONS (5)
  - Hepatic cancer [Unknown]
  - Drug ineffective [Unknown]
  - Blood test abnormal [Not Recovered/Not Resolved]
  - Inappropriate schedule of product administration [Unknown]
  - Enzyme level decreased [Recovering/Resolving]
